FAERS Safety Report 7901547-3 (Version None)
Quarter: 2011Q4

REPORT INFORMATION
  Report Type: 
  Country: None (occurrence: None)
  Receive Date: 20111108
  Receipt Date: 20110916
  Transmission Date: 20120403
  Serious: Yes (Death, Other)
  Sender: FDA-Public Use
  Company Number: GB-ROCHE-1009504

PATIENT
  Sex: Female

DRUGS (6)
  1. FYBOGEL [Concomitant]
     Dates: start: 20110605
  2. DEXAMETHASONE [Concomitant]
     Dates: start: 20110613, end: 20110617
  3. LUCENTIS [Suspect]
     Indication: AGE-RELATED MACULAR DEGENERATION
     Dosage: DOSE: 0.5 MG/L
     Route: 050
     Dates: start: 20100527, end: 20110602
  4. METOCLOPRAMIDE [Concomitant]
  5. CINNARIZINE [Concomitant]
  6. CEFOTAXIME [Concomitant]

REACTIONS (4)
  - DEATH [None]
  - BLOOD BILIRUBIN ABNORMAL [None]
  - ALANINE AMINOTRANSFERASE ABNORMAL [None]
  - BLOOD ALKALINE PHOSPHATASE ABNORMAL [None]
